FAERS Safety Report 16305396 (Version 1)
Quarter: 2019Q2

REPORT INFORMATION
  Report Type: Report from Study
  Country: US (occurrence: US)
  Receive Date: 20190513
  Receipt Date: 20190513
  Transmission Date: 20190711
  Serious: Yes (Death, Hospitalization)
  Sender: FDA-Public Use
  Company Number: US-JNJFOC-20190514715

PATIENT
  Age: 61 Year
  Sex: Male
  Weight: 46 kg

DRUGS (1)
  1. IMBRUVICA [Suspect]
     Active Substance: IBRUTINIB
     Indication: CHRONIC LYMPHOCYTIC LEUKAEMIA
     Route: 065
     Dates: start: 20161003, end: 20171209

REACTIONS (2)
  - Disease progression [Fatal]
  - Pleural effusion [Recovered/Resolved]

NARRATIVE: CASE EVENT DATE: 20170214
